FAERS Safety Report 7342004-5 (Version None)
Quarter: 2011Q1

REPORT INFORMATION
  Report Type: 
  Country: None (occurrence: None)
  Receive Date: 20110309
  Receipt Date: 20110308
  Transmission Date: 20110831
  Serious: Yes (Death)
  Sender: FDA-Public Use
  Company Number: CZ-PFIZER INC-2011042948

PATIENT
  Age: 53 Year
  Sex: Male

DRUGS (2)
  1. PREDNISONE [Suspect]
     Dosage: 80 MG DAILY
  2. METHYLPREDNISOLONE [Suspect]
     Indication: PULMONARY FIBROSIS
     Dosage: 80 MG

REACTIONS (6)
  - SECONDARY IMMUNODEFICIENCY [None]
  - RESPIRATORY FAILURE [None]
  - CONDITION AGGRAVATED [None]
  - ASPERGILLOSIS [None]
  - CHRONIC OBSTRUCTIVE PULMONARY DISEASE [None]
  - LUNG ABSCESS [None]
